FAERS Safety Report 8304959-1 (Version None)
Quarter: 2012Q2

REPORT INFORMATION
  Report Type: 
  Country: None (occurrence: None)
  Receive Date: 20120402
  Receipt Date: 20120321
  Transmission Date: 20120825
  Serious: Yes (Hospitalization, Other)
  Sender: FDA-Public Use
  Company Number: 2012030752

PATIENT
  Age: 61 Year
  Sex: Female
  Weight: 143.7903 kg

DRUGS (18)
  1. SODIUM CHLORIDE [Concomitant]
  2. ZEMAIRA [Suspect]
     Indication: ALPHA-1 ANTI-TRYPSIN DEFICIENCY
     Dosage: (952 MG/VIAL; 952 MG/20 ML INTRAVENOUS (NOT OTHERWISE SPECIFIED))
     Route: 042
     Dates: start: 20120101
  3. ZEMAIRA [Suspect]
     Indication: EMPHYSEMA
     Dosage: (952 MG/VIAL; 952 MG/20 ML INTRAVENOUS (NOT OTHERWISE SPECIFIED))
     Route: 042
     Dates: start: 20120101
  4. SINGULAIR [Concomitant]
  5. VITAMIN D [Concomitant]
  6. LASIX [Concomitant]
  7. PRINZIDE [Concomitant]
  8. ZEMAIRA [Suspect]
     Indication: ALPHA-1 ANTI-TRYPSIN DEFICIENCY
     Dosage: (60 MG/KG 1X/WEEK, 945 MG/VIAL;MAX RATE=0.08 ML/KG/MIN (11.6  ML/MIN) INTRAVENOUS (NOT OTHERWISE SPE
     Route: 042
     Dates: start: 20070101
  9. ZEMAIRA [Suspect]
     Indication: EMPHYSEMA
     Dosage: (60 MG/KG 1X/WEEK, 945 MG/VIAL;MAX RATE=0.08 ML/KG/MIN (11.6  ML/MIN) INTRAVENOUS (NOT OTHERWISE SPE
     Route: 042
     Dates: start: 20070101
  10. CARDIZEM [Concomitant]
  11. ZOCOR [Concomitant]
  12. METFORMIN HCL [Concomitant]
  13. ADVAIR HFA [Concomitant]
  14. IBUPROFEN (ADVIL) [Concomitant]
  15. MULTIVITAMIN (ACCOMIN MULTIVITAMIN) [Concomitant]
  16. ZEMAIRA [Suspect]
     Indication: EMPHYSEMA
     Dates: start: 20120314
  17. ZEMAIRA [Suspect]
     Indication: ALPHA-1 ANTI-TRYPSIN DEFICIENCY
     Dates: start: 20120314
  18. IPRATROPIUM ALBUTEROL (SALBUTAMOL W/IPRATROPIUM) [Concomitant]

REACTIONS (6)
  - CONCOMITANT DISEASE AGGRAVATED [None]
  - CHRONIC RESPIRATORY FAILURE [None]
  - PNEUMONIA [None]
  - CELLULITIS [None]
  - RENAL FAILURE ACUTE [None]
  - CHRONIC OBSTRUCTIVE PULMONARY DISEASE [None]
